FAERS Safety Report 22054868 (Version 2)
Quarter: 2023Q1

REPORT INFORMATION
  Report Type: Spontaneous
  Country: DE (occurrence: DE)
  Receive Date: 20230302
  Receipt Date: 20230329
  Transmission Date: 20230418
  Serious: Yes (Disabling, Congenital Anomaly, Other)
  Sender: FDA-Public Use
  Company Number: None

PATIENT
  Sex: Male

DRUGS (1)
  1. CYTOTEC [Suspect]
     Active Substance: MISOPROSTOL
     Dosage: 50 UG, 3X/DAY
     Route: 064
     Dates: start: 20171211

REACTIONS (4)
  - Foetal exposure during pregnancy [Unknown]
  - Disability [Unknown]
  - Speech disorder developmental [Not Recovered/Not Resolved]
  - Developmental delay [Not Recovered/Not Resolved]
